FAERS Safety Report 7603066-0 (Version None)
Quarter: 2011Q3

REPORT INFORMATION
  Report Type: 
  Country: None (occurrence: None)
  Receive Date: 20110711
  Receipt Date: 20110711
  Transmission Date: 20111222
  Serious: Yes (Other)
  Sender: FDA-Public Use
  Company Number: None

PATIENT

DRUGS (2)
  1. CIPROFLOXACIN [Suspect]
     Indication: URINARY TRACT INFECTION
     Dosage: 500MG TWICE DAILY PO
     Route: 048
     Dates: start: 20110701, end: 20110711
  2. CIPROFLOXACIN [Suspect]
     Indication: CYSTITIS
     Dosage: 500MG TWICE DAILY PO
     Route: 048
     Dates: start: 20110701, end: 20110711

REACTIONS (3)
  - MOOD ALTERED [None]
  - SUICIDAL IDEATION [None]
  - DEPRESSION [None]
